FAERS Safety Report 4855347-1 (Version None)
Quarter: 2005Q4

REPORT INFORMATION
  Report Type: 
  Country: None (occurrence: None)
  Receive Date: 20051125
  Receipt Date: 20050803
  Transmission Date: 20060501
  Serious: Yes (Other)
  Sender: FDA-Public Use
  Company Number: US-JNJFOC-20050701347

PATIENT
  Age: 79 Year
  Sex: Male
  Weight: 85.7298 kg

DRUGS (5)
  1. LEVAQUIN [Suspect]
     Indication: PROSTATITIS
     Dosage: 1000 MG, 1 IN 1 DAY, ORAL; SEE IMAGE
     Route: 048
     Dates: start: 20050701, end: 20050701
  2. LEVAQUIN [Suspect]
     Indication: PROSTATITIS
     Dosage: 1000 MG, 1 IN 1 DAY, ORAL; SEE IMAGE
     Route: 048
     Dates: start: 20050702, end: 20050702
  3. LIPITOR [Concomitant]
  4. LISINOPRIL (TABLETS) LISINOPRIL [Concomitant]
  5. ASPIRIN [Concomitant]

REACTIONS (3)
  - LIP BLISTER [None]
  - OEDEMA [None]
  - PETECHIAE [None]
